FAERS Safety Report 17568443 (Version 2)
Quarter: 2020Q4

REPORT INFORMATION
  Report Type: Report from Study
  Country: US (occurrence: US)
  Receive Date: 20200320
  Receipt Date: 20201124
  Transmission Date: 20210113
  Serious: Yes (Death, Hospitalization, Other)
  Sender: FDA-Public Use
  Company Number: US-BAUSCH-BL-2018-035242

PATIENT
  Age: 64 Year
  Sex: Female

DRUGS (3)
  1. XIFAXAN [Suspect]
     Active Substance: RIFAXIMIN
     Indication: HEPATIC CIRRHOSIS
     Dosage: ABOUT 2 TO 3 YEARS AGO PRIOR TO THE REPORT
     Route: 048
  2. XIFAXAN [Suspect]
     Active Substance: RIFAXIMIN
     Indication: AMMONIA INCREASED
  3. INSULIN [Concomitant]
     Active Substance: INSULIN NOS
     Indication: PRODUCT USED FOR UNKNOWN INDICATION
     Route: 058

REACTIONS (11)
  - Liver disorder [Fatal]
  - Pyrexia [Recovered/Resolved]
  - Condition aggravated [Fatal]
  - Renal impairment [Unknown]
  - Localised infection [Unknown]
  - Renal disorder [Fatal]
  - Sepsis [Unknown]
  - Wound infection bacterial [Unknown]
  - Memory impairment [Unknown]
  - Osteomalacia [Unknown]
  - Depression [Unknown]

NARRATIVE: CASE EVENT DATE: 2020
